FAERS Safety Report 7942902-5 (Version None)
Quarter: 2011Q4

REPORT INFORMATION
  Report Type: 
  Country: None (occurrence: None)
  Receive Date: 20111128
  Receipt Date: 20111115
  Transmission Date: 20120403
  Serious: Yes (Other)
  Sender: FDA-Public Use
  Company Number: ES-ELI_LILLY_AND_COMPANY-ES201111004826

PATIENT
  Sex: Female

DRUGS (3)
  1. CYMBALTA [Suspect]
     Dosage: 30 MG, QD
  2. CYMBALTA [Suspect]
     Dosage: 60 MG, EACH MORNING
  3. LYRICA [Concomitant]
     Dosage: UNK

REACTIONS (3)
  - BREAST SWELLING [None]
  - SYNCOPE [None]
  - LOSS OF CONSCIOUSNESS [None]
